FAERS Safety Report 6259181-X (Version None)
Quarter: 2009Q3

REPORT INFORMATION
  Report Type: 
  Country: None (occurrence: None)
  Receive Date: 20090702
  Receipt Date: 20090617
  Transmission Date: 20100115
  Serious: Yes (Hospitalization, Other)
  Sender: FDA-Public Use
  Company Number: 2009AL000274

PATIENT
  Age: 85 Year
  Sex: Female

DRUGS (13)
  1. DIGOXIN [Suspect]
     Dosage: 0.125MG, DAILY, PO
     Route: 048
     Dates: start: 20060101, end: 20080501
  2. AVAPRO [Concomitant]
  3. LASIX [Concomitant]
  4. FOLIC ACID [Concomitant]
  5. LOPRESSOR [Concomitant]
  6. ALLOPURINOL [Concomitant]
  7. NIACIN [Concomitant]
  8. LOVASTATIN [Concomitant]
  9. ASPIRIN [Concomitant]
  10. IRON [Concomitant]
  11. CALCIUM [Concomitant]
  12. VITAMIN D [Concomitant]
  13. MULTI-VITAMINS [Concomitant]

REACTIONS (19)
  - ABASIA [None]
  - ACTIVITIES OF DAILY LIVING IMPAIRED [None]
  - APATHY [None]
  - ARRHYTHMIA [None]
  - CONFUSIONAL STATE [None]
  - DECUBITUS ULCER [None]
  - DEHYDRATION [None]
  - HALLUCINATION [None]
  - HEART RATE DECREASED [None]
  - HYPERSOMNIA [None]
  - IMMOBILE [None]
  - LETHARGY [None]
  - MICTURITION DISORDER [None]
  - OVERDOSE [None]
  - SPEECH DISORDER [None]
  - THERAPEUTIC AGENT TOXICITY [None]
  - VISION BLURRED [None]
  - VOMITING [None]
  - WEIGHT DECREASED [None]
